FAERS Safety Report 4717614-1 (Version None)
Quarter: 2005Q3

REPORT INFORMATION
  Report Type: 
  Country: None (occurrence: None)
  Receive Date: 20050712
  Receipt Date: 20050407
  Transmission Date: 20060218
  Serious: No
  Sender: FDA-Public Use
  Company Number: 2005S1000065

PATIENT
  Sex: 0
  Weight: 86 kg

DRUGS (1)
  1. CUBICIN [Suspect]
     Indication: ENDOCARDITIS STAPHYLOCOCCAL
     Dosage: 500 MG;Q24H;IV
     Route: 042
     Dates: start: 20050324

REACTIONS (1)
  - BLOOD CREATINE PHOSPHOKINASE INCREASED [None]
